FAERS Safety Report 10035226 (Version 1)
Quarter: 2014Q1

REPORT INFORMATION
  Report Type: Report from Study
  Country: JP (occurrence: JP)
  Receive Date: 20140325
  Receipt Date: 20140325
  Transmission Date: 20141002
  Serious: Yes (Death)
  Sender: FDA-Public Use
  Company Number: JP-CUBIST PHARMACEUTICAL, INC.-2014CBST000443

PATIENT
  Sex: 0

DRUGS (5)
  1. CUBICIN [Suspect]
     Indication: DEVICE RELATED INFECTION
     Dosage: 6 MG/KG, ONCE DAILY
     Route: 041
     Dates: start: 20131022, end: 20131022
  2. CUBICIN [Suspect]
     Indication: OFF LABEL USE
  3. CRAVIT [Concomitant]
     Indication: DEVICE RELATED INFECTION
     Dosage: 500 MG, ONCE DAILY
     Route: 041
     Dates: start: 20131018, end: 20131021
  4. MEROPEN                            /01250501/ [Concomitant]
     Indication: PRODUCT USED FOR UNKNOWN INDICATION
     Dosage: 1 G, TID
     Route: 042
     Dates: start: 20131022, end: 20131023
  5. CANCIDAS [Concomitant]
     Indication: PRODUCT USED FOR UNKNOWN INDICATION
     Dosage: 70 MG, ONCE DAILY
     Route: 042
     Dates: start: 20131022, end: 20131022

REACTIONS (1)
  - Respiratory failure [Fatal]
